FAERS Safety Report 8066274-3 (Version None)
Quarter: 2012Q1

REPORT INFORMATION
  Report Type: 
  Country: None (occurrence: None)
  Receive Date: 20120117
  Receipt Date: 20120105
  Transmission Date: 20120608
  Serious: Yes (Other)
  Sender: FDA-Public Use
  Company Number: NSR_00345_2012

PATIENT
  Age: 61 Year
  Sex: Female

DRUGS (8)
  1. PREGABALIN [Concomitant]
  2. REPAGLINIDE [Concomitant]
  3. BACLOFEN [Suspect]
     Indication: MUSCLE SPASMS
     Dosage: (5 MG TID)
  4. BACLOFEN [Suspect]
     Indication: BACK PAIN
     Dosage: (5 MG TID)
  5. AMITRIPTYLINE HCL [Concomitant]
  6. HYDROMORPHONE HCL [Concomitant]
  7. LORAZEPAM [Concomitant]
  8. IRBESARTAN [Concomitant]

REACTIONS (4)
  - TOXICITY TO VARIOUS AGENTS [None]
  - DISORIENTATION [None]
  - COMA SCALE ABNORMAL [None]
  - MENTAL STATUS CHANGES [None]
